FAERS Safety Report 9599442 (Version 1)
Quarter: 2013Q4

REPORT INFORMATION
  Report Type: Spontaneous
  Country: US (occurrence: US)
  Receive Date: 20131004
  Receipt Date: 20131004
  Transmission Date: 20140711
  Serious: No
  Sender: FDA-Public Use
  Company Number: US-AMGEN-USASP2013029162

PATIENT
  Age: 53 Year
  Sex: Male
  Weight: 152.38 kg

DRUGS (6)
  1. ENBREL [Suspect]
     Indication: PRODUCT USED FOR UNKNOWN INDICATION
     Dosage: 25 MG, 2 TIMES/WK
     Route: 058
  2. ALLOPURINOL [Concomitant]
     Dosage: 300 MG, UNK
  3. OMEPRAZOLE [Concomitant]
     Dosage: 20 MG, UNK
  4. LOSARTAN POTASSIUM [Concomitant]
     Dosage: 100 MG, UNK
  5. LOVASTATIN [Concomitant]
     Dosage: 10 MG, UNK
  6. CELEBREX [Concomitant]
     Dosage: 100 MG, UNK

REACTIONS (3)
  - Wrong technique in drug usage process [Unknown]
  - Injection site mass [Unknown]
  - Injection site reaction [Unknown]
